FAERS Safety Report 18199655 (Version 1)
Quarter: 2020Q3

REPORT INFORMATION
  Report Type: Spontaneous
  Country: US (occurrence: US)
  Receive Date: 20200826
  Receipt Date: 20200826
  Transmission Date: 20201103
  Serious: No
  Sender: FDA-Public Use
  Company Number: US-BAYER-2020-171432

PATIENT
  Age: 15 Year
  Sex: Female

DRUGS (1)
  1. CIPROFLOXACIN. [Suspect]
     Active Substance: CIPROFLOXACIN
     Indication: TULARAEMIA

REACTIONS (3)
  - Product use in unapproved indication [None]
  - Off label use [None]
  - Incorrect product administration duration [None]
